FAERS Safety Report 23197924 (Version 1)
Quarter: 2023Q4

REPORT INFORMATION
  Report Type: Report from Study
  Country: CN (occurrence: CN)
  Receive Date: 20231117
  Receipt Date: 20231117
  Transmission Date: 20240109
  Serious: Yes (Hospitalization, Other)
  Sender: FDA-Public Use
  Company Number: CN-HUTCHMED LIMITED-HMP2023CN01656

PATIENT
  Age: 53 Year
  Sex: Male

DRUGS (1)
  1. FRUQUINTINIB [Suspect]
     Active Substance: FRUQUINTINIB
     Indication: Gastric cancer
     Dosage: 5 MILLIGRAM, QD
     Route: 048
     Dates: start: 202212

REACTIONS (9)
  - Cystitis [Recovered/Resolved]
  - Erectile dysfunction [Recovering/Resolving]
  - Diarrhoea [Recovering/Resolving]
  - Dysphonia [Recovering/Resolving]
  - Gingival bleeding [Recovering/Resolving]
  - Haematuria [Recovering/Resolving]
  - Abdominal pain lower [Recovering/Resolving]
  - Palmar-plantar erythrodysaesthesia syndrome [Recovering/Resolving]
  - Off label use [Unknown]

NARRATIVE: CASE EVENT DATE: 20221201
